FAERS Safety Report 14221191 (Version 1)
Quarter: 2017Q4

REPORT INFORMATION
  Report Type: Spontaneous
  Country: US (occurrence: US)
  Receive Date: 20171124
  Receipt Date: 20171124
  Transmission Date: 20180321
  Serious: Yes (Other)
  Sender: FDA-Public Use
  Company Number: US-PFIZER INC-2017504802

PATIENT
  Age: 73 Year
  Sex: Female

DRUGS (1)
  1. IBRANCE [Suspect]
     Active Substance: PALBOCICLIB
     Dosage: 75 MG, CYCLIC, (1 CAPSULE DAILY FOR 21 DAYS THEN DO NOT TAKE FOR 7 DAYS)
     Route: 048
     Dates: start: 20160711, end: 20171120

REACTIONS (1)
  - Neutropenia [Unknown]
